FAERS Safety Report 13334797 (Version 1)
Quarter: 2017Q1

REPORT INFORMATION
  Report Type: Spontaneous
  Country: FR (occurrence: FR)
  Receive Date: 20170314
  Receipt Date: 20170314
  Transmission Date: 20170428
  Serious: Yes (Hospitalization)
  Sender: FDA-Public Use
  Company Number: FR-ROCHE-1905454

PATIENT
  Age: 58 Year
  Sex: Female
  Weight: 47 kg

DRUGS (5)
  1. SEROPLEX [Concomitant]
     Active Substance: ESCITALOPRAM OXALATE
  2. AVASTIN [Suspect]
     Active Substance: BEVACIZUMAB
     Indication: INVASIVE DUCTAL BREAST CARCINOMA
     Route: 041
     Dates: start: 20160510
  3. XELODA [Suspect]
     Active Substance: CAPECITABINE
     Indication: INVASIVE DUCTAL BREAST CARCINOMA
     Route: 042
     Dates: start: 20161028
  4. SECTRAL [Concomitant]
     Active Substance: ACEBUTOLOL HYDROCHLORIDE
  5. LEXOMIL [Concomitant]
     Active Substance: BROMAZEPAM

REACTIONS (3)
  - Ischaemic stroke [Unknown]
  - Hemiplegia [Unknown]
  - Aphasia [Unknown]

NARRATIVE: CASE EVENT DATE: 20170101
